FAERS Safety Report 6442134-6 (Version None)
Quarter: 2009Q4

REPORT INFORMATION
  Report Type: 
  Country: None (occurrence: None)
  Receive Date: 20091116
  Receipt Date: 20091104
  Transmission Date: 20100525
  Serious: Yes (Other)
  Sender: FDA-Public Use
  Company Number: PHHY2009CA42618

PATIENT
  Sex: Female

DRUGS (1)
  1. ACLASTA [Suspect]
     Dosage: UNK

REACTIONS (4)
  - ARTHRALGIA [None]
  - CELLULITIS STAPHYLOCOCCAL [None]
  - ERYTHEMA [None]
  - JOINT SWELLING [None]
